FAERS Safety Report 19932396 (Version 1)
Quarter: 2021Q4

REPORT INFORMATION
  Report Type: Spontaneous
  Country: US (occurrence: US)
  Receive Date: 20211008
  Receipt Date: 20211008
  Transmission Date: 20220303
  Serious: No
  Sender: FDA-Public Use
  Company Number: US-ORGANON-O2109USA002203

PATIENT
  Age: 76 Year
  Sex: Female

DRUGS (3)
  1. MONTELUKAST SODIUM [Suspect]
     Active Substance: MONTELUKAST SODIUM
     Indication: Sinusitis
     Dosage: 1 PILL ONCE A DAY
     Route: 048
     Dates: start: 20210921, end: 202109
  2. SINGULAIR [Suspect]
     Active Substance: MONTELUKAST SODIUM
     Indication: Sinusitis
     Dosage: 1 PILL ONCE A DAY
     Route: 048
  3. METFORMIN [Concomitant]
     Active Substance: METFORMIN HYDROCHLORIDE
     Dosage: UNK

REACTIONS (6)
  - Headache [Not Recovered/Not Resolved]
  - Sinusitis [Unknown]
  - Drug effective for unapproved indication [Unknown]
  - Product availability issue [Unknown]
  - Product dose omission issue [Unknown]
  - Product use in unapproved indication [Unknown]

NARRATIVE: CASE EVENT DATE: 20210921
